FAERS Safety Report 12107329 (Version 4)
Quarter: 2016Q2

REPORT INFORMATION
  Report Type: Report from Study
  Country: MX (occurrence: MX)
  Receive Date: 20160223
  Receipt Date: 20160411
  Transmission Date: 20160815
  Serious: Yes (Death, Life-Threatening, Disabling)
  Sender: FDA-Public Use
  Company Number: PHHY2016MX023603

PATIENT
  Age: 90 Year
  Sex: Female

DRUGS (1)
  1. EXFORGE [Suspect]
     Active Substance: AMLODIPINE BESYLATE\VALSARTAN
     Indication: BLOOD PRESSURE INCREASED
     Dosage: 2 DF, QD
     Route: 065

REACTIONS (5)
  - Aphasia [Not Recovered/Not Resolved]
  - Embolism [Not Recovered/Not Resolved]
  - Death [Fatal]
  - Eye disorder [Not Recovered/Not Resolved]
  - Brain death [Not Recovered/Not Resolved]

NARRATIVE: CASE EVENT DATE: 201511
